FAERS Safety Report 4729364-6 (Version None)
Quarter: 2005Q3

REPORT INFORMATION
  Report Type: 
  Country: None (occurrence: None)
  Receive Date: 20050729
  Receipt Date: 20050721
  Transmission Date: 20060218
  Serious: Yes (Death, Other)
  Sender: FDA-Public Use
  Company Number: PHBS2005BR10518

PATIENT
  Age: 64 Year
  Sex: Female

DRUGS (2)
  1. TEGRETOL [Suspect]
     Indication: DIABETIC NEUROPATHY
     Dosage: 200 MG, QD
     Route: 048
     Dates: start: 20050426
  2. ARTRODAR [Concomitant]
     Indication: OSTEOARTHRITIS
     Dosage: 1 DF, QD
     Route: 048
     Dates: start: 20050428

REACTIONS (4)
  - DEATH [None]
  - GENERALISED ERYTHEMA [None]
  - HYPERSENSITIVITY [None]
  - STEVENS-JOHNSON SYNDROME [None]
